FAERS Safety Report 8890825 (Version 1)
Quarter: 2012Q4

REPORT INFORMATION
  Report Type: 
  Country: GB (occurrence: GB)
  Receive Date: 20121106
  Receipt Date: 20121106
  Transmission Date: 20130627
  Serious: Yes (Other)
  Sender: FDA-Public Use
  Company Number: PHHY2012GB100331

PATIENT
  Age: 16 Year
  Sex: Female
  Weight: 54 kg

DRUGS (2)
  1. PARACETAMOL [Suspect]
  2. ISOTRETINOIN [Concomitant]
     Indication: ACNE
     Dosage: 20 mg, QD
     Dates: start: 20120806, end: 20121018

REACTIONS (1)
  - Overdose [Unknown]
